FAERS Safety Report 6661484-1 (Version None)
Quarter: 2010Q1

REPORT INFORMATION
  Report Type: 
  Country: None (occurrence: None)
  Receive Date: 20100331
  Receipt Date: 20100319
  Transmission Date: 20100710
  Serious: Yes (Other)
  Sender: FDA-Public Use
  Company Number: SE-PFIZER INC-2010035524

PATIENT
  Age: 44 Year
  Sex: Female

DRUGS (4)
  1. ZELDOX [Suspect]
     Indication: MANIA
     Dosage: 13.33 MG, 2X/DAY
     Route: 048
     Dates: start: 20100305
  2. STESOLID [Concomitant]
     Dosage: UNK
  3. STILNOCT [Concomitant]
     Dosage: UNK
  4. ATARAX [Concomitant]
     Dosage: UNK

REACTIONS (4)
  - DRUG ADMINISTRATION ERROR [None]
  - PALPITATIONS [None]
  - PSYCHOMOTOR HYPERACTIVITY [None]
  - TONGUE DISORDER [None]
